FAERS Safety Report 23893265 (Version 2)
Quarter: 2024Q2

REPORT INFORMATION
  Report Type: Spontaneous
  Country: JP (occurrence: JP)
  Receive Date: 20240524
  Receipt Date: 20240614
  Transmission Date: 20240716
  Serious: Yes (Other)
  Sender: FDA-Public Use
  Company Number: JP-BEH-2024172445

PATIENT

DRUGS (5)
  1. ALBUMIN HUMAN [Suspect]
     Active Substance: ALBUMIN HUMAN
     Indication: Product used for unknown indication
     Route: 064
  2. OXYGEN [Suspect]
     Active Substance: OXYGEN
     Route: 064
  3. DOPAMINE [Suspect]
     Active Substance: DOPAMINE HYDROCHLORIDE
     Route: 064
  4. FUROSEMIDE [Suspect]
     Active Substance: FUROSEMIDE
     Route: 064
  5. CARPERITIDE [Suspect]
     Active Substance: CARPERITIDE
     Route: 064

REACTIONS (3)
  - Foetal heart rate abnormal [Unknown]
  - Premature baby [Unknown]
  - Foetal exposure during pregnancy [Unknown]
